FAERS Safety Report 21987873 (Version 2)
Quarter: 2023Q1

REPORT INFORMATION
  Report Type: Spontaneous
  Country: JP (occurrence: JP)
  Receive Date: 20230214
  Receipt Date: 20230223
  Transmission Date: 20230418
  Serious: Yes (Other)
  Sender: FDA-Public Use
  Company Number: JP-CHUGAI-2023003996

PATIENT
  Age: 5 Decade
  Sex: Female

DRUGS (3)
  1. AVASTIN [Suspect]
     Active Substance: BEVACIZUMAB
     Indication: Breast cancer
     Dosage: 460 MILLIGRAM, ONCE/3WEEKS
     Route: 041
     Dates: start: 20220927
  2. AVASTIN [Suspect]
     Active Substance: BEVACIZUMAB
     Dosage: 460 MILLIGRAM, ONCE/3WEEKS
     Route: 041
     Dates: start: 20230106, end: 20230123
  3. PACLITAXEL [Concomitant]
     Active Substance: PACLITAXEL
     Indication: Breast cancer
     Route: 041

REACTIONS (4)
  - Mycobacterial infection [Not Recovered/Not Resolved]
  - Central venous catheterisation [Recovered/Resolved]
  - Central venous catheter removal [Recovered/Resolved]
  - Wound dehiscence [Not Recovered/Not Resolved]

NARRATIVE: CASE EVENT DATE: 20230126
